FAERS Safety Report 11691312 (Version 2)
Quarter: 2016Q1

REPORT INFORMATION
  Report Type: Spontaneous
  Country: JP (occurrence: JP)
  Receive Date: 20151102
  Receipt Date: 20160108
  Transmission Date: 20160525
  Serious: Yes (Other)
  Sender: FDA-Public Use
  Company Number: JP-ALEXION-A201504197

PATIENT
  Age: 5 Year
  Sex: Female
  Weight: 10 kg

DRUGS (11)
  1. STRENSIQ [Suspect]
     Active Substance: ASFOTASE ALFA
     Indication: HYPOPHOSPHATASIA
     Dosage: 0.3 ML, TIW
     Route: 058
     Dates: start: 20130402
  2. ADEROXIN [Concomitant]
     Dosage: 250 MG, UNK
     Route: 065
     Dates: start: 20151020, end: 20151021
  3. AMBROXOL HYDROCHLORIDE [Concomitant]
     Active Substance: AMBROXOL HYDROCHLORIDE
     Indication: SPUTUM RETENTION
     Dosage: 0.75 ML, BID
     Route: 048
     Dates: start: 20100808
  4. RIVOTRIL [Concomitant]
     Active Substance: CLONAZEPAM
     Indication: EPILEPSY
     Dosage: 0.2 MG, BID
     Route: 048
     Dates: start: 20101029
  5. RIVOTRIL [Concomitant]
     Active Substance: CLONAZEPAM
     Dosage: 0.5 MG, UNK
     Route: 065
     Dates: start: 20151008
  6. RIVOTRIL [Concomitant]
     Active Substance: CLONAZEPAM
     Dosage: 4 MG, PRN
     Route: 065
     Dates: start: 20151019
  7. CARBOCISTEINE [Concomitant]
     Active Substance: CARBOCYSTEINE
     Indication: SPUTUM RETENTION
     Dosage: 1.25 ML, BID
     Route: 048
     Dates: start: 20100808
  8. RIVOTRIL [Concomitant]
     Active Substance: CLONAZEPAM
     Dosage: 0.8 MG, UNK
     Route: 065
     Dates: start: 20151020, end: 20151021
  9. RIVOTRIL [Concomitant]
     Active Substance: CLONAZEPAM
     Dosage: 1.0 MG, UNK
     Route: 065
     Dates: start: 20151022
  10. ADEROXIN [Concomitant]
     Dosage: 300 MG, UNK
     Route: 065
     Dates: start: 20151022
  11. ADEROXIN [Concomitant]
     Indication: VITAMIN B6
     Dosage: 75 MG, BID
     Route: 048
     Dates: start: 20100702

REACTIONS (6)
  - Bone decalcification [Unknown]
  - Condition aggravated [Unknown]
  - Disease recurrence [Recovering/Resolving]
  - Seizure [Recovered/Resolved]
  - Drug ineffective [Unknown]
  - Epilepsy [Recovering/Resolving]

NARRATIVE: CASE EVENT DATE: 201510
